FAERS Safety Report 8703686 (Version 5)
Quarter: 2012Q4

REPORT INFORMATION
  Report Type: 
  Country: US (occurrence: US)
  Receive Date: 20120803
  Receipt Date: 20121016
  Transmission Date: 20130627
  Serious: Yes (Hospitalization)
  Sender: FDA-Public Use
  Company Number: US-B.I. PHARMACEUTICALS,INC./RIDGEFIELD-2012-BP-17022BP

PATIENT
  Age: 50 Year
  Sex: Male
  Weight: 90.72 kg

DRUGS (6)
  1. PRADAXA [Suspect]
     Indication: CEREBROVASCULAR ACCIDENT PROPHYLAXIS
     Dosage: 300 mg
     Route: 048
     Dates: start: 20120514, end: 20120723
  2. PRADAXA [Suspect]
     Indication: ATRIAL FIBRILLATION
  3. PRADAXA [Suspect]
     Indication: ATRIAL FLUTTER
  4. COREG CR [Concomitant]
     Dosage: 40 mg
     Route: 048
  5. BENICAR [Concomitant]
     Dosage: 20 mg
     Route: 048
  6. DIGOXIN [Concomitant]
     Route: 048

REACTIONS (1)
  - Cerebral artery embolism [Recovered/Resolved]
